FAERS Safety Report 7265692-0 (Version None)
Quarter: 2011Q1

REPORT INFORMATION
  Report Type: 
  Country: None (occurrence: None)
  Receive Date: 20110120
  Receipt Date: 20110113
  Transmission Date: 20110831
  Serious: Yes (Hospitalization, Disabling, Other)
  Sender: FDA-Public Use
  Company Number: TRP_07510_2011

PATIENT
  Sex: Male

DRUGS (2)
  1. INTERFERON [Suspect]
     Indication: HEPATITIS C
     Dosage: (DF)
     Dates: start: 20080801, end: 20090201
  2. RIBAVARIN [Suspect]
     Indication: HEPATITIS C
     Dosage: (DF)
     Dates: start: 20080801, end: 20090201

REACTIONS (4)
  - DYSSTASIA [None]
  - IMPAIRED WORK ABILITY [None]
  - NEUROPATHY PERIPHERAL [None]
  - CRYING [None]
